FAERS Safety Report 7929708-8 (Version None)
Quarter: 2011Q4

REPORT INFORMATION
  Report Type: 
  Country: None (occurrence: None)
  Receive Date: 20111121
  Receipt Date: 20111115
  Transmission Date: 20120403
  Serious: Yes (Other)
  Sender: FDA-Public Use
  Company Number: DE-JNJFOC-20101004076

PATIENT
  Age: 43 Year
  Sex: Female
  Weight: 67 kg

DRUGS (1)
  1. SIMPONI [Suspect]
     Indication: SPONDYLITIS
     Route: 058
     Dates: start: 20100913, end: 20100913

REACTIONS (1)
  - CROHN'S DISEASE [None]
